FAERS Safety Report 6470434-2 (Version None)
Quarter: 2009Q4

REPORT INFORMATION
  Report Type: 
  Country: None (occurrence: None)
  Receive Date: 20091202
  Receipt Date: 20091202
  Transmission Date: 20100525
  Serious: Yes (Hospitalization)
  Sender: FDA-Public Use
  Company Number: None

PATIENT
  Age: 80 Year
  Sex: Male
  Weight: 76 kg

DRUGS (11)
  1. LINEZOLID [Suspect]
     Indication: DEVICE RELATED INFECTION
     Dosage: 600MG TWICE DAILY ORAL
     Route: 048
     Dates: start: 20090616
  2. LINEZOLID [Suspect]
     Indication: OSTEOMYELITIS
     Dosage: 600MG TWICE DAILY ORAL
     Route: 048
     Dates: start: 20090616
  3. SIMVASTATIN [Concomitant]
  4. FUROSEMIDE [Concomitant]
  5. OMEPRAZOLE [Concomitant]
  6. LEVOTHYROXINE SODIUM [Concomitant]
  7. GEMFIBROZIL [Concomitant]
  8. VESICARE [Concomitant]
  9. CALCIUM WITH D [Concomitant]
  10. NAPROXIN [Concomitant]
  11. ASPIRIN [Concomitant]

REACTIONS (6)
  - DECREASED APPETITE [None]
  - DEHYDRATION [None]
  - GLOSSODYNIA [None]
  - HYPOPHAGIA [None]
  - RENAL FAILURE [None]
  - STOMATITIS [None]
